FAERS Safety Report 22520192 (Version 1)
Quarter: 2023Q2

REPORT INFORMATION
  Report Type: Spontaneous
  Country: GB (occurrence: GB)
  Receive Date: 20230605
  Receipt Date: 20230605
  Transmission Date: 20230721
  Serious: Yes (Death, Hospitalization, Other)
  Sender: FDA-Public Use
  Company Number: GB-002147023-NVSC2023GB113820

PATIENT
  Age: 35 Year
  Sex: Male

DRUGS (1)
  1. FENTANYL [Suspect]
     Active Substance: FENTANYL
     Indication: Product used for unknown indication
     Dosage: UNK
     Route: 030

REACTIONS (5)
  - Cardiac arrest [Fatal]
  - Coma [Fatal]
  - Dyspnoea [Fatal]
  - Intentional overdose [Fatal]
  - Depressed level of consciousness [Fatal]
